FAERS Safety Report 8607153 (Version 3)
Quarter: 2014Q1

REPORT INFORMATION
  Report Type: Spontaneous
  Country: US (occurrence: US)
  Receive Date: 20120611
  Receipt Date: 20140131
  Transmission Date: 20141002
  Serious: Yes (Hospitalization)
  Sender: FDA-Public Use
  Company Number: US-ASTRAZENECA-2012SE34792

PATIENT
  Age: 57 Year
  Sex: Female

DRUGS (21)
  1. NEXIUM [Suspect]
     Route: 048
  2. NEXIUM [Suspect]
     Dosage: ONCE A DAY
     Route: 048
     Dates: start: 1992
  3. NEXIUM [Suspect]
     Dosage: ONCE A DAY
     Route: 048
     Dates: start: 20100602
  4. VITAMIN C [Concomitant]
  5. VITAMIN D [Concomitant]
  6. ISOSORBIDE [Concomitant]
  7. FUROSEMIDE [Concomitant]
  8. SIMVASTATIN [Concomitant]
  9. KLOR-CON-M [Concomitant]
  10. ESTRODIAL [Concomitant]
  11. CLONAZEPAM [Concomitant]
  12. DILTIAZEM [Concomitant]
  13. GABATENTIN [Concomitant]
  14. TRAMADOL [Concomitant]
  15. HYZAAR [Concomitant]
  16. LOTREL [Concomitant]
  17. CELEXA [Concomitant]
  18. RELAFEN [Concomitant]
  19. ZOCOR [Concomitant]
  20. SYNTEST [Concomitant]
  21. DETROL [Concomitant]

REACTIONS (4)
  - Pain [Unknown]
  - Osteoporosis [Unknown]
  - Multiple fractures [Unknown]
  - Bone disorder [Unknown]
